FAERS Safety Report 19189722 (Version 1)
Quarter: 2021Q2

REPORT INFORMATION
  Report Type: Spontaneous
  Country: HR (occurrence: HR)
  Receive Date: 20210428
  Receipt Date: 20210428
  Transmission Date: 20210717
  Serious: Yes (Other)
  Sender: FDA-Public Use
  Company Number: HR-PFIZER INC-2021431791

PATIENT
  Age: 37 Year
  Sex: Male

DRUGS (2)
  1. ZOLOFT [Suspect]
     Active Substance: SERTRALINE HYDROCHLORIDE
     Dosage: UNK
     Route: 048
     Dates: start: 20210320, end: 20210320
  2. LORSILAN [Suspect]
     Active Substance: LORAZEPAM
     Dosage: UNK
     Route: 048
     Dates: start: 20210320, end: 20210320

REACTIONS (9)
  - Altered state of consciousness [Unknown]
  - Acidosis [Unknown]
  - Pyrexia [Unknown]
  - Suicide attempt [Unknown]
  - Quadriparesis [Unknown]
  - Hyperkalaemia [Unknown]
  - Intentional overdose [Unknown]
  - Chemical poisoning [Unknown]
  - Blood creatinine increased [Unknown]

NARRATIVE: CASE EVENT DATE: 20210320
